FAERS Safety Report 5061003-X (Version None)
Quarter: 2006Q2

REPORT INFORMATION
  Report Type: 
  Country: None (occurrence: None)
  Receive Date: 20060630
  Receipt Date: 20060413
  Transmission Date: 20061013
  Serious: No
  Sender: FDA-Public Use
  Company Number: US176165

PATIENT
  Age: 79 Year
  Sex: Female

DRUGS (8)
  1. SENSIPAR [Suspect]
     Indication: DRUG USE FOR UNKNOWN INDICATION
     Dosage: 60 MG, PO
     Route: 048
  2. CETIRIZINE HCL [Concomitant]
  3. SEVELAMER HCL [Concomitant]
  4. LEVOTHYROXINE SODIUM [Concomitant]
  5. PRAVASTATIN SODIUM [Concomitant]
  6. LIOTHYRONINE SODIUM [Concomitant]
  7. METOCLOPRMIDE [Concomitant]
  8. FORMOTEROL FUMARATE [Concomitant]

REACTIONS (1)
  - STOMACH DISCOMFORT [None]
